FAERS Safety Report 13423816 (Version 1)
Quarter: 2017Q2

REPORT INFORMATION
  Report Type: Report from Study
  Country: US (occurrence: US)
  Receive Date: 20170410
  Receipt Date: 20170410
  Transmission Date: 20170830
  Serious: Yes (Hospitalization)
  Sender: FDA-Public Use
  Company Number: GXBR2017US001316

PATIENT
  Age: 65 Year
  Sex: Female
  Weight: 52.7 kg

DRUGS (33)
  1. DIFLUCAN [Concomitant]
     Active Substance: FLUCONAZOLE
     Indication: INFECTION PROPHYLAXIS
     Dosage: UNK DF, UNK
     Route: 065
     Dates: start: 20161016, end: 20161021
  2. DILAUDID [Concomitant]
     Active Substance: HYDROMORPHONE HYDROCHLORIDE
     Indication: PAIN
     Dosage: UNK DF, UNK
     Route: 065
  3. SOLU-MEDROL [Concomitant]
     Active Substance: METHYLPREDNISOLONE SODIUM SUCCINATE
     Indication: PREMEDICATION
     Dosage: UNK DF, UNK
     Route: 065
     Dates: start: 20161020, end: 20161020
  4. SIMETHICONE (DIMETHICONE) [Concomitant]
     Active Substance: DIMETHICONE
     Indication: FLATULENCE
     Dosage: UNK DF, UNK
     Route: 065
     Dates: start: 20161017, end: 20161018
  5. SPIRIVA [Concomitant]
     Active Substance: TIOTROPIUM BROMIDE MONOHYDRATE
     Indication: ASTHMA
     Dosage: UNK
     Route: 065
     Dates: start: 20161016, end: 20161021
  6. VITAMIN D [Concomitant]
     Active Substance: CHOLECALCIFEROL
     Indication: VITAMIN D DEFICIENCY
     Dosage: UNK DF, UNK
     Route: 065
     Dates: start: 20161016, end: 20161021
  7. KYTRIL [Concomitant]
     Active Substance: GRANISETRON HYDROCHLORIDE
     Indication: PREMEDICATION
     Dosage: UNK DF, UNK
     Route: 065
     Dates: start: 20161016
  8. CHRONULAC [Concomitant]
     Active Substance: LACTULOSE
     Indication: CONSTIPATION PROPHYLAXIS
     Dosage: UNK DF, UNK
     Route: 065
     Dates: start: 20161018, end: 20161021
  9. OMEPRAZOLE. [Concomitant]
     Active Substance: OMEPRAZOLE
     Indication: GASTROOESOPHAGEAL REFLUX DISEASE
     Dosage: UNK DF, UNK
     Route: 065
     Dates: start: 20161016, end: 20161021
  10. GLYCOLAX [Concomitant]
     Active Substance: POLYETHYLENE GLYCOL 3350
     Indication: CONSTIPATION PROPHYLAXIS
     Dosage: UNK DF, UNK
     Route: 065
     Dates: start: 20161016, end: 20161021
  11. ENTOCORT EC [Concomitant]
     Active Substance: BUDESONIDE
     Indication: CROHN^S DISEASE
     Dosage: UNK DF, UNK
     Route: 065
     Dates: start: 20161016, end: 20161021
  12. PHENERGAN [Concomitant]
     Active Substance: PROMETHAZINE HYDROCHLORIDE
     Indication: RHINITIS ALLERGIC
     Dosage: UNK
     Route: 065
     Dates: start: 20161020, end: 20161020
  13. ALBUTEROL HFA [Concomitant]
     Active Substance: ALBUTEROL SULFATE
     Indication: ASTHMA
     Dosage: UNK DF, UNK
     Route: 065
     Dates: start: 20161016, end: 20161021
  14. XANAX [Concomitant]
     Active Substance: ALPRAZOLAM
     Indication: ANXIETY
     Dosage: UNK DF, UNK
     Route: 065
     Dates: start: 20161016, end: 20161021
  15. CIPRO [Concomitant]
     Active Substance: CIPROFLOXACIN HYDROCHLORIDE
     Indication: INFECTION PROPHYLAXIS
     Dosage: UNK DF, UNK
     Route: 065
     Dates: start: 20161020, end: 20161021
  16. ZOVIRAX [Concomitant]
     Active Substance: ACYCLOVIR
     Indication: INFECTION PROPHYLAXIS
     Dosage: UNK DF, UNK
     Route: 065
     Dates: start: 20161016, end: 20161021
  17. MOMETASONE [Concomitant]
     Active Substance: MOMETASONE
     Indication: RHINITIS ALLERGIC
     Dosage: UNK DF, UNK
     Route: 065
     Dates: start: 20161016, end: 20161021
  18. ZOFRAN [Concomitant]
     Active Substance: ONDANSETRON HYDROCHLORIDE
     Indication: NAUSEA
     Dosage: UNK DF, UNK
     Route: 065
     Dates: start: 20161016, end: 20161020
  19. COMPAZINE [Concomitant]
     Active Substance: PROCHLORPERAZINE MALEATE
     Indication: NAUSEA
     Dosage: UNK DF, UNK
     Route: 065
     Dates: start: 20161016, end: 20161021
  20. GEMTUZUMAB OZOGAMICIN [Suspect]
     Active Substance: GEMTUZUMAB OZOGAMICIN
     Indication: ACUTE MYELOID LEUKAEMIA RECURRENT
     Dosage: 3MG/M2
     Route: 042
     Dates: start: 20161020
  21. BENADRYL ^PARKE DAVIS^                  /ISR/ [Concomitant]
     Indication: PREMEDICATION
     Dosage: UNK DF, UNK
     Route: 065
     Dates: start: 20161020
  22. MAGNESIUM [Concomitant]
     Active Substance: MAGNESIUM
     Indication: HYPOMAGNESAEMIA
     Dosage: UNK DF, UNK
     Route: 065
     Dates: start: 20161019, end: 20161019
  23. PHENERGAN [Concomitant]
     Active Substance: PROMETHAZINE HYDROCHLORIDE
     Indication: NAUSEA
     Dosage: UNK DF, UNK
     Route: 065
     Dates: start: 20161016, end: 20161017
  24. DECITABINE. [Suspect]
     Active Substance: DECITABINE
     Indication: ACUTE MYELOID LEUKAEMIA RECURRENT
     Dosage: 20 MG/M2
     Route: 042
     Dates: start: 20161016, end: 20161020
  25. COLACE [Concomitant]
     Active Substance: DOCUSATE SODIUM
     Indication: CONSTIPATION PROPHYLAXIS
     Dosage: UNK DF, UNK
     Route: 065
     Dates: start: 20161016, end: 20161021
  26. WELLBUTRIN SR [Concomitant]
     Active Substance: BUPROPION HYDROCHLORIDE
     Indication: SMOKING CESSATION THERAPY
     Dosage: UNK DF, UNK
     Route: 065
     Dates: start: 20161016, end: 20161021
  27. SYNTHROID [Concomitant]
     Active Substance: LEVOTHYROXINE SODIUM
     Indication: HYPOTHYROIDISM
     Dosage: UNK DF, UNK
     Route: 065
     Dates: start: 20161016, end: 20161021
  28. MELATONIN [Concomitant]
     Active Substance: MELATONIN
     Indication: INSOMNIA
     Dosage: UNK DF, UNK
     Route: 065
     Dates: start: 20161016, end: 20161021
  29. KLOR-CON M10 [Concomitant]
     Active Substance: POTASSIUM CHLORIDE
     Indication: HYPOKALAEMIA
     Dosage: UNK DF, UNK
     Route: 065
     Dates: start: 20161018, end: 20161019
  30. SENOKOT [Concomitant]
     Active Substance: SENNOSIDES
     Indication: CONSTIPATION PROPHYLAXIS
     Dosage: UNK DF, UNK
     Route: 065
     Dates: start: 20161016, end: 20161021
  31. TYLENOL ^JOHNSON + JOHNSON^ [Concomitant]
     Indication: PAIN
     Dosage: UNK DF, UNK
     Route: 065
     Dates: start: 20161016, end: 20161021
  32. BISACODYL ACTAVIS [Concomitant]
     Indication: CONSTIPATION PROPHYLAXIS
     Dosage: UNK DF, UNK
     Route: 065
     Dates: start: 20161015
  33. ATIVAN [Concomitant]
     Active Substance: LORAZEPAM
     Indication: ANXIETY
     Dosage: UNK DF, UNK
     Route: 065
     Dates: start: 20161020, end: 20161020

REACTIONS (3)
  - Chills [Recovered/Resolved]
  - Febrile neutropenia [Recovered/Resolved]
  - Pyrexia [Recovered/Resolved]

NARRATIVE: CASE EVENT DATE: 20161104
